FAERS Safety Report 9238472 (Version 2)
Quarter: 2013Q2

REPORT INFORMATION
  Report Type: Spontaneous
  Country: US (occurrence: None)
  Receive Date: 20130416
  Receipt Date: 20130604
  Transmission Date: 20140414
  Serious: Yes (Other)
  Sender: FDA-Public Use
  Company Number: ACO_35390_2013

PATIENT
  Age: 57 Year
  Sex: Female
  Weight: 74.8 kg

DRUGS (4)
  1. AMPYRA [Suspect]
     Indication: PARAPARESIS
     Route: 048
     Dates: start: 201103
  2. AMPYRA [Suspect]
     Indication: MULTIPLE SCLEROSIS
     Route: 048
     Dates: start: 201103
  3. BACLOFEN [Suspect]
     Indication: MULTIPLE SCLEROSIS
     Route: 048
     Dates: start: 200710
  4. COPAXONE (GLATIRAMER ACETATE) 20 MG/ML [Suspect]
     Indication: MULTIPLE SCLEROSIS
     Route: 058
     Dates: start: 201105

REACTIONS (3)
  - Meniscus injury [None]
  - Arthralgia [None]
  - Injury [None]
